FAERS Safety Report 23353977 (Version 3)
Quarter: 2024Q1

REPORT INFORMATION
  Report Type: Spontaneous
  Country: US (occurrence: None)
  Receive Date: 20240101
  Receipt Date: 20240123
  Transmission Date: 20240410
  Serious: No
  Sender: FDA-Public Use
  Company Number: 2023A282354

PATIENT
  Age: 78 Year
  Sex: Male

DRUGS (4)
  1. BREZTRI [Suspect]
     Active Substance: BUDESONIDE\FORMOTEROL\GLYCOPYRROLATE
     Indication: Chronic obstructive pulmonary disease
     Route: 055
     Dates: start: 20231122, end: 20231218
  2. METOPROLOL [Suspect]
     Active Substance: METOPROLOL
     Indication: Heart rate decreased
     Route: 048
  3. MULTAQ [Concomitant]
     Active Substance: DRONEDARONE
  4. ELIQUIS [Concomitant]
     Active Substance: APIXABAN

REACTIONS (7)
  - Hypoacusis [Unknown]
  - Dyspnoea [Unknown]
  - Device use issue [Unknown]
  - Incorrect dose administered by device [Unknown]
  - Wrong technique in device usage process [Unknown]
  - Device delivery system issue [Unknown]
  - Influenza [Unknown]

NARRATIVE: CASE EVENT DATE: 20231211
